FAERS Safety Report 9474378 (Version 1)
Quarter: 2013Q3

REPORT INFORMATION
  Report Type: Spontaneous
  Country: AU (occurrence: AU)
  Receive Date: 20130823
  Receipt Date: 20130823
  Transmission Date: 20140515
  Serious: Yes (Death)
  Sender: FDA-Public Use
  Company Number: AU-PFIZER INC-2013239337

PATIENT
  Sex: Male

DRUGS (12)
  1. LINEZOLID [Suspect]
     Route: 048
  2. COTRIMOXAZOLE [Suspect]
  3. MYCOPHENOLATE MOFETIL [Suspect]
  4. PREDNISONE [Suspect]
  5. TACROLIMUS [Suspect]
  6. CLARITHROMYCIN [Concomitant]
  7. DOXYCYCLINE HYDROCHLORIDE [Concomitant]
  8. ERTAPENEM SODIUM [Concomitant]
  9. MEROPENEM [Concomitant]
  10. MOXIFLOXACIN [Concomitant]
  11. RIFAMPICIN [Concomitant]
  12. VANCOMYCIN HYDROCHLORIDE [Concomitant]

REACTIONS (4)
  - Bone marrow failure [Fatal]
  - Nephropathy toxic [Fatal]
  - Pneumocystis jirovecii pneumonia [Fatal]
  - Rhodococcus infection [Fatal]
